FAERS Safety Report 5398228-X (Version None)
Quarter: 2007Q3

REPORT INFORMATION
  Report Type: 
  Country: None (occurrence: None)
  Receive Date: 20070726
  Receipt Date: 20070719
  Transmission Date: 20080115
  Serious: Yes (Hospitalization)
  Sender: FDA-Public Use
  Company Number: US-ROXANE LABORATORIES, INC-2007-BP-17908RO

PATIENT
  Age: 50 Year
  Sex: Male

DRUGS (9)
  1. METHOTREXATE [Suspect]
     Indication: PSORIASIS
     Dosage: 15 MG WEEKLY
  2. METHOTREXATE [Suspect]
     Dosage: 20 MG WEEKLY
     Route: 048
  3. INFLIXIMAB [Suspect]
     Indication: PSORIASIS
     Dosage: 7.5 MG/KG EVERY 8 WEEKS
  4. CYCLOSPORINE [Suspect]
     Indication: PSORIASIS
  5. FLUOCINONIDE [Concomitant]
     Indication: PSORIASIS
     Route: 061
  6. CLOBETASOL PROPIONATE [Concomitant]
     Indication: PSORIASIS
     Route: 061
  7. AMLODIPINE [Concomitant]
     Indication: HYPERTENSION
  8. LEVOTHYROXINE SODIUM [Concomitant]
     Indication: HYPOTHYROIDISM
  9. VENLAFAXINE HCL [Concomitant]
     Indication: DEPRESSION

REACTIONS (3)
  - OSTEOMYELITIS [None]
  - SKIN CANCER [None]
  - TOE AMPUTATION [None]
